FAERS Safety Report 5158596-0 (Version None)
Quarter: 2006Q4

REPORT INFORMATION
  Report Type: 
  Country: None (occurrence: None)
  Receive Date: 20061128
  Receipt Date: 20061116
  Transmission Date: 20070319
  Serious: Yes (Hospitalization, Other)
  Sender: FDA-Public Use
  Company Number: US-ELI_LILLY_AND_COMPANY-US200611003451

PATIENT
  Age: 73 Year
  Sex: Female

DRUGS (7)
  1. EVISTA [Suspect]
     Indication: OSTEOPOROSIS
     Dosage: UNK, UNK
     Dates: start: 20040101, end: 20060101
  2. FORTEO [Suspect]
     Indication: OSTEOPOROSIS
     Dosage: UNK, UNK
     Dates: start: 20060801
  3. LIPITOR [Concomitant]
     Indication: BLOOD CHOLESTEROL
     Dosage: 10 MG, EACH EVENING
  4. TOPROL-XL [Concomitant]
     Indication: HEART RATE INCREASED
     Dosage: 25 MG, EACH MORNING
  5. PREVACID [Concomitant]
     Indication: OESOPHAGEAL DISORDER
     Dosage: 30 MG, EACH MORNING
  6. CALCIUM [Concomitant]
  7. VITAMIN D [Concomitant]

REACTIONS (8)
  - BACK PAIN [None]
  - BONE DISORDER [None]
  - FRACTURE [None]
  - GAIT DISTURBANCE [None]
  - PELVIC FRACTURE [None]
  - SPINAL FRACTURE [None]
  - STRESS FRACTURE [None]
  - SWELLING [None]
